FAERS Safety Report 18377492 (Version 1)
Quarter: 2020Q4

REPORT INFORMATION
  Report Type: Spontaneous
  Country: US (occurrence: US)
  Receive Date: 20201013
  Receipt Date: 20201013
  Transmission Date: 20210114
  Serious: Yes (Other)
  Sender: FDA-Public Use
  Company Number: None

PATIENT
  Age: 29 Year
  Sex: Male
  Weight: 72 kg

DRUGS (2)
  1. HUMALOG [Concomitant]
     Active Substance: INSULIN LISPRO
  2. ADMELOG [Suspect]
     Active Substance: INSULIN LISPRO
     Indication: TYPE 1 DIABETES MELLITUS
     Dosage: ?          QUANTITY:16 INJECTION(S);?
     Route: 058
     Dates: start: 20201009, end: 20201012

REACTIONS (2)
  - Hypoglycaemia [None]
  - Hyperglycaemia [None]

NARRATIVE: CASE EVENT DATE: 20201011
